FAERS Safety Report 6544536-6 (Version None)
Quarter: 2010Q1

REPORT INFORMATION
  Report Type: 
  Country: None (occurrence: None)
  Receive Date: 20100115
  Receipt Date: 20100105
  Transmission Date: 20100710
  Serious: Yes (Hospitalization)
  Sender: FDA-Public Use
  Company Number: 230004J10IRL

PATIENT
  Sex: Female

DRUGS (3)
  1. REBIF [Suspect]
     Indication: DRUG USE FOR UNKNOWN INDICATION
     Dosage: 22 MCG
     Dates: start: 20071114, end: 20080922
  2. REBIF [Suspect]
     Indication: DRUG USE FOR UNKNOWN INDICATION
     Dosage: 22 MCG
     Dates: start: 20081103, end: 20090217
  3. REBIF [Suspect]
     Indication: DRUG USE FOR UNKNOWN INDICATION
     Dosage: 22 MCG
     Dates: start: 20090610

REACTIONS (3)
  - HAEMOPTYSIS [None]
  - LOWER RESPIRATORY TRACT INFECTION [None]
  - LYMPHOCYTE COUNT DECREASED [None]
